FAERS Safety Report 12532713 (Version 1)
Quarter: 2016Q3

REPORT INFORMATION
  Report Type: Spontaneous
  Country: US (occurrence: US)
  Receive Date: 20160706
  Receipt Date: 20160706
  Transmission Date: 20161109
  Serious: No
  Sender: FDA-Public Use
  Company Number: US-009507513-1606USA008566

PATIENT
  Sex: Female
  Weight: 98.41 kg

DRUGS (2)
  1. NEXPLANON [Suspect]
     Active Substance: ETONOGESTREL
     Indication: CONTRACEPTION
     Dosage: 1 ROD/THREE YEARS
     Route: 059
     Dates: start: 20141021
  2. NEXPLANON [Suspect]
     Active Substance: ETONOGESTREL
     Dosage: 1 DF/THREE YEARS
     Route: 059
     Dates: start: 20110831, end: 201408

REACTIONS (5)
  - Device kink [Unknown]
  - Contusion [Unknown]
  - Device breakage [Unknown]
  - Fat tissue increased [Not Recovered/Not Resolved]
  - Weight increased [Not Recovered/Not Resolved]
